FAERS Safety Report 10494553 (Version 1)
Quarter: 2014Q4

REPORT INFORMATION
  Report Type: Spontaneous
  Country: None (occurrence: None)
  Receive Date: 20141001
  Receipt Date: 20141001
  Transmission Date: 20150528
  Serious: Yes (Hospitalization)
  Sender: FDA-Public Use
  Company Number: 20141905-000

PATIENT
  Age: 32 Year
  Sex: Female

DRUGS (6)
  1. FOLIC ACID. [Concomitant]
     Active Substance: FOLIC ACID
  2. LEUTERAN [Concomitant]
  3. CORTISONE [Concomitant]
     Active Substance: CORTISONE\HYDROCORTISONE
  4. LEVOTHYROX [Concomitant]
     Active Substance: LEVOTHYROXINE
  5. METOJECT [Suspect]
     Active Substance: METHOTREXATE SODIUM
     Indication: RHEUMATOID ARTHRITIS
     Dates: start: 20140620
  6. INEXIUM [Concomitant]
     Active Substance: ESOMEPRAZOLE

REACTIONS (5)
  - Tremor [None]
  - Depression [None]
  - Asthma [None]
  - Fatigue [None]
  - Mental disorder [None]

NARRATIVE: CASE EVENT DATE: 20140620
